FAERS Safety Report 4373692-3 (Version None)
Quarter: 2004Q1

REPORT INFORMATION
  Report Type: 
  Country: None (occurrence: None)
  Receive Date: 20040305
  Receipt Date: 20040108
  Transmission Date: 20041129
  Serious: Yes (Other)
  Sender: FDA-Public Use
  Company Number: 2004UW00369

PATIENT
  Age: 77 Year
  Sex: Female

DRUGS (2)
  1. CRESTOR [Suspect]
     Dosage: 10 MG QD PO
     Route: 048
     Dates: start: 20031217
  2. NIASPAN [Suspect]
     Dosage: 1000 MG DAILY
     Dates: end: 20040102

REACTIONS (2)
  - DRUG INTERACTION [None]
  - PAIN IN EXTREMITY [None]
